FAERS Safety Report 21435333 (Version 10)
Quarter: 2023Q1

REPORT INFORMATION
  Report Type: Spontaneous
  Country: DE (occurrence: DE)
  Receive Date: 20221010
  Receipt Date: 20230119
  Transmission Date: 20230417
  Serious: Yes (Other)
  Sender: FDA-Public Use
  Company Number: DE-002147023-NVSC2022DE215549

PATIENT

DRUGS (20)
  1. DICLOFENAC [Suspect]
     Active Substance: DICLOFENAC
     Indication: Bone pain
     Dosage: UNK, NON-STEROIDAL ANTI-INFLAMMATORY DRUG DICLOFENAC
     Route: 065
  2. DICLOFENAC [Suspect]
     Active Substance: DICLOFENAC
     Indication: Pain
  3. IBUPROFEN [Suspect]
     Active Substance: IBUPROFEN
     Indication: Bone pain
     Dosage: UNK (THERAPY WITH IBUPROFEN IN UNKNOWN DOSAGE WHENEVER AFFLICTED WITH BONE)
     Route: 065
     Dates: start: 2016
  4. OXYCODONE [Suspect]
     Active Substance: OXYCODONE
     Indication: Pain
     Dosage: 100 MG, TID (ORAL OPIOID THERAPY WITH PROLONGED-RELEASE OXYCODONE (30-30-40 MG))
     Route: 048
  5. OXYCODONE [Suspect]
     Active Substance: OXYCODONE
     Indication: Pain
     Dosage: UNK ((30-30-40 MG)UNK (ORAL OPIOID THERAPY WITH PROLONGED-RELEASE OXYCODONE))
     Route: 048
  6. OXYCODONE [Suspect]
     Active Substance: OXYCODONE
     Indication: Pain
  7. MORPHINE [Suspect]
     Active Substance: MORPHINE
     Indication: Pain
     Dosage: 10 MG (ORAL OPIOID THERAPY/ 10 MG OF MORPHINE REQUIRED BETWEEN SIX AND EIGHT TIMES DAILY)
     Route: 048
  8. PREGABALIN [Suspect]
     Active Substance: PREGABALIN
     Indication: Pain
     Dosage: 150 MG, BID (300 MG, QD (150 MG OF PREGABALIN IN THE MORNING AND IN THE EVENING))
     Route: 065
  9. PREGABALIN [Suspect]
     Active Substance: PREGABALIN
     Indication: Analgesic therapy
     Dosage: 50 MG, TID (THREE TIMES A DAY; 50-50-150 MG)
     Route: 065
  10. PREGABALIN [Suspect]
     Active Substance: PREGABALIN
     Dosage: 150 MG, QD
     Route: 065
  11. ZOLEDRONIC ACID [Suspect]
     Active Substance: ZOLEDRONIC ACID
     Indication: Pathological fracture
     Dosage: UNK (ZOLEDRONIC ACID I.V. EVERY FOUR WEEKS)
     Route: 042
  12. ZOLEDRONIC ACID [Suspect]
     Active Substance: ZOLEDRONIC ACID
     Indication: Pain
     Dosage: UNK
     Route: 065
  13. ZOLEDRONIC ACID [Suspect]
     Active Substance: ZOLEDRONIC ACID
     Indication: Analgesic therapy
  14. LENALIDOMIDE [Suspect]
     Active Substance: LENALIDOMIDE
     Indication: Immunomodulatory therapy
     Dosage: 300 MG, QD
     Route: 065
  15. LENALIDOMIDE [Suspect]
     Active Substance: LENALIDOMIDE
     Dosage: UNK
     Route: 065
     Dates: start: 2021
  16. AMITRIPTYLINE [Suspect]
     Active Substance: AMITRIPTYLINE
     Indication: Pain
     Dosage: 25 MG, QD (25 MG AT NIGHT)
     Route: 065
  17. HYDROMORPHONE [Suspect]
     Active Substance: HYDROMORPHONE
     Indication: Pain
     Dosage: 16 MG, QD ( HYDROMORPHONE IN A 24-HOUR GALENIC/ EVERY 24 HOURS)
     Route: 065
     Dates: start: 2017
  18. AMBROXOL [Suspect]
     Active Substance: AMBROXOL
     Indication: Pain
     Dosage: UNK (CREAM CONTAINING 20% AMBROXOL) CREAM CONTAINING 20 PERCENT AMBROXOL)
     Route: 065
     Dates: start: 2019, end: 2019
  19. AMBROXOL [Suspect]
     Active Substance: AMBROXOL
     Indication: Arthralgia
  20. VITAMIN D CAPSULES (ERGOCALCIFEROL) [Concomitant]
     Indication: Product used for unknown indication
     Dosage: 2000 IU, QD
     Route: 065

REACTIONS (9)
  - Metastasis [Unknown]
  - Neoplasm progression [Not Recovered/Not Resolved]
  - Sleep disorder [Recovered/Resolved]
  - Decreased appetite [Recovered/Resolved]
  - Depression [Recovered/Resolved]
  - Condition aggravated [Recovered/Resolved]
  - Somnolence [Recovered/Resolved]
  - Fatigue [Not Recovered/Not Resolved]
  - Drug ineffective [Unknown]

NARRATIVE: CASE EVENT DATE: 20170101
